FAERS Safety Report 14972944 (Version 7)
Quarter: 2019Q2

REPORT INFORMATION
  Report Type: Spontaneous
  Country: US (occurrence: US)
  Receive Date: 20180605
  Receipt Date: 20190619
  Transmission Date: 20190711
  Serious: Yes (Other)
  Sender: FDA-Public Use
  Company Number: US-PFIZER INC-2018224751

PATIENT
  Age: 53 Year
  Sex: Female

DRUGS (55)
  1. LAMOTRIGINE. [Concomitant]
     Active Substance: LAMOTRIGINE
     Indication: SEIZURE
     Dosage: 4 DF, EVERY NIGHT (AT BEDTIME)
     Route: 048
  2. HYDROCORTISONE. [Concomitant]
     Active Substance: HYDROCORTISONE
     Dosage: UNK, (TOPICAL CREAM)
  3. KETOCONAZOLE. [Concomitant]
     Active Substance: KETOCONAZOLE
     Dosage: UNK
  4. ALEVE [Concomitant]
     Active Substance: NAPROXEN SODIUM
     Dosage: 2 DF, 3X/DAY
  5. GABAPENTIN. [Concomitant]
     Active Substance: GABAPENTIN
     Indication: SEIZURE
     Dosage: 1 DF, 3X/DAY
     Route: 048
  6. PANTOPRAZOLE SODIUM. [Concomitant]
     Active Substance: PANTOPRAZOLE SODIUM
     Dosage: 1 DF, 1X/DAY (DELAYED RELEASE)
     Route: 048
  7. TOPIRAMATE. [Concomitant]
     Active Substance: TOPIRAMATE
     Dosage: 100 MG, 3X/DAY
  8. TROKENDI XR [Concomitant]
     Active Substance: TOPIRAMATE
     Indication: GENERALISED TONIC-CLONIC SEIZURE
     Dosage: 1 DF, 2X/DAY
     Route: 048
  9. VITAMIN D3 [Concomitant]
     Active Substance: CHOLECALCIFEROL
     Dosage: 1 DF, 1X/DAY
  10. LAMOTRIGINE EXTENDED RELEASE [Concomitant]
     Active Substance: LAMOTRIGINE
     Dosage: 2 MG, 2X/DAY
  11. NORTRIPTYLINE [Concomitant]
     Active Substance: NORTRIPTYLINE
     Indication: HEREDITARY MOTOR AND SENSORY NEUROPATHY
     Dosage: 2 DF, NIGHTLY (WEEK 2)
     Route: 048
  12. TROKENDI XR [Concomitant]
     Active Substance: TOPIRAMATE
     Dosage: UNK
     Dates: start: 2014
  13. OMEPRAZOLE. [Concomitant]
     Active Substance: OMEPRAZOLE
     Dosage: 20 MG, 1X/DAY (DELAYED RELEASE)
     Route: 048
  14. VIMPAT [Concomitant]
     Active Substance: LACOSAMIDE
     Dosage: 50 MG, 2X/DAY
     Route: 048
     Dates: start: 20120227, end: 20171026
  15. TOPAMAX [Concomitant]
     Active Substance: TOPIRAMATE
     Dosage: 100 MG, 3 EVERY BEDTIME
     Route: 048
     Dates: start: 2006
  16. TOPAMAX [Concomitant]
     Active Substance: TOPIRAMATE
     Dosage: 200 MG, DAILY
     Route: 048
     Dates: end: 20171026
  17. LAMICTAL [Concomitant]
     Active Substance: LAMOTRIGINE
     Indication: SEIZURE
     Dosage: 2 DF, 2X/DAY
     Route: 048
  18. TOPIRAMATE. [Concomitant]
     Active Substance: TOPIRAMATE
     Dosage: 1 DF, 2X/DAY
     Route: 048
  19. KETOCONAZOLE. [Concomitant]
     Active Substance: KETOCONAZOLE
     Dosage: UNK, (TOPICAL CREAM)
  20. TIZANIDINE. [Concomitant]
     Active Substance: TIZANIDINE
     Dosage: 1 DF, AS NEEDED (EVERY 12 HOURS)
     Route: 048
  21. NORTRIPTYLINE [Concomitant]
     Active Substance: NORTRIPTYLINE
     Dosage: 4 DF, NIGHTLY (WEEK 4)
     Route: 048
  22. TROKENDI XR [Concomitant]
     Active Substance: TOPIRAMATE
     Dosage: 1 DF, DAILY
     Route: 048
  23. TROKENDI XR [Concomitant]
     Active Substance: TOPIRAMATE
     Dosage: 2 DF, DAILY
  24. FLEXERIL [Concomitant]
     Active Substance: CYCLOBENZAPRINE HYDROCHLORIDE
     Dosage: 5 MG, 2X/DAY
     Dates: start: 20111102, end: 20171026
  25. LAMOTRIGINE. [Concomitant]
     Active Substance: LAMOTRIGINE
     Dosage: 2 DF, 2X/DAY
     Route: 048
  26. LAMOTRIGINE. [Concomitant]
     Active Substance: LAMOTRIGINE
     Dosage: UNK
     Dates: start: 2014
  27. LAMICTAL [Concomitant]
     Active Substance: LAMOTRIGINE
     Dosage: 4 DF, EVERY NIGHT
     Route: 048
     Dates: end: 20171026
  28. FLUOCINONIDE. [Concomitant]
     Active Substance: FLUOCINONIDE
     Dosage: UNK, (TOPICAL SOLUTION)
  29. CYCLOBENZAPRINE. [Concomitant]
     Active Substance: CYCLOBENZAPRINE
     Dosage: 5 MG, 1X/DAY
  30. ZOCOR [Concomitant]
     Active Substance: SIMVASTATIN
     Dosage: 40 MG, 1X/DAY
     Dates: start: 20111102, end: 20171026
  31. GABAPENTIN. [Concomitant]
     Active Substance: GABAPENTIN
     Indication: RESTLESS LEGS SYNDROME
     Dosage: UNK
     Dates: start: 2017
  32. TOPAMAX [Concomitant]
     Active Substance: TOPIRAMATE
     Dosage: 100 MG, DAILY
     Route: 048
     Dates: end: 20120110
  33. ATORVASTATIN CALCIUM. [Concomitant]
     Active Substance: ATORVASTATIN CALCIUM
     Dosage: 1 DF, 1X/DAY
     Route: 048
  34. MUPIROCIN. [Concomitant]
     Active Substance: MUPIROCIN
     Dosage: UNK (TOPICAL OINTMENT)
  35. LAMOTRIGINE EXTENDED RELEASE [Concomitant]
     Active Substance: LAMOTRIGINE
     Indication: GENERALISED TONIC-CLONIC SEIZURE
     Dosage: 2 DF, DAILY
     Route: 048
  36. LAMOTRIGINE EXTENDED RELEASE [Concomitant]
     Active Substance: LAMOTRIGINE
     Dosage: 100 MG, 3X/DAY
  37. CELEBREX [Concomitant]
     Active Substance: CELECOXIB
     Indication: ARTHRITIS
     Dosage: 100 MG, UNK
     Route: 048
  38. LIPITOR [Concomitant]
     Active Substance: ATORVASTATIN CALCIUM
     Dosage: 20 MG, 1X/DAY (NIGHTLY)
     Route: 048
     Dates: end: 20171026
  39. GABAPENTIN. [Concomitant]
     Active Substance: GABAPENTIN
     Indication: SLEEP DISORDER
  40. TOPAMAX [Concomitant]
     Active Substance: TOPIRAMATE
     Indication: SEIZURE
     Dosage: 2 DF, AT NIGHT
     Route: 048
  41. LAMICTAL [Concomitant]
     Active Substance: LAMOTRIGINE
     Dosage: 375 MG, AT BEDTIME
  42. MELOXICAM. [Concomitant]
     Active Substance: MELOXICAM
     Dosage: 1 DF, 1X/DAY
     Route: 048
  43. NORTRIPTYLINE [Concomitant]
     Active Substance: NORTRIPTYLINE
     Dosage: 3 DF, NIGHTLY (WEEK 3)
     Route: 048
  44. CELEBREX [Concomitant]
     Active Substance: CELECOXIB
     Dosage: 2 DF, 2X/DAY
     Route: 048
     Dates: start: 20111121, end: 20171026
  45. ANTARA [Concomitant]
     Active Substance: FENOFIBRATE
     Dosage: 130 MG, 1X/DAY
  46. MOBIC [Concomitant]
     Active Substance: MELOXICAM
     Dosage: 15 MG, UNK
     Dates: start: 20150904, end: 20171026
  47. DILANTIN [Suspect]
     Active Substance: PHENYTOIN
     Indication: SEIZURE
     Dosage: UNK
     Route: 048
  48. GABAPENTIN. [Concomitant]
     Active Substance: GABAPENTIN
     Indication: POLYNEUROPATHY
     Dosage: 3 DF, DAILY (AT BEDTIME)
     Route: 048
  49. NAPROXEN. [Concomitant]
     Active Substance: NAPROXEN
     Dosage: 1 DF, AS NEEDED (EVERY TWELVE HOURS)
     Route: 048
  50. TOPIRAMATE. [Concomitant]
     Active Substance: TOPIRAMATE
     Dosage: 3 DF, EVERY NIGHT FOR DAYS
  51. NORTRIPTYLINE [Concomitant]
     Active Substance: NORTRIPTYLINE
     Indication: RESTLESS LEGS SYNDROME
     Dosage: 1 DF, NIGHTLY (WEEK 1)
     Route: 048
  52. DOXYCYCLINE HYCLATE. [Concomitant]
     Active Substance: DOXYCYCLINE HYCLATE
     Dosage: 100 MG, UNK
  53. SIMVASTATIN. [Concomitant]
     Active Substance: SIMVASTATIN
     Dosage: 40 MG, 2X/DAY
     Route: 048
  54. SIMVASTATIN. [Concomitant]
     Active Substance: SIMVASTATIN
     Dosage: 40 MG, 1X/DAY
  55. ZANAFLEX [Concomitant]
     Active Substance: TIZANIDINE HYDROCHLORIDE
     Dosage: 2 MG, (EVERY SIX HOURS)

REACTIONS (4)
  - Disturbance in attention [Unknown]
  - Parkinsonian gait [Unknown]
  - Muscular weakness [Unknown]
  - Cerebellar atrophy [Not Recovered/Not Resolved]

NARRATIVE: CASE EVENT DATE: 2000
